FAERS Safety Report 16277942 (Version 1)
Quarter: 2019Q2

REPORT INFORMATION
  Report Type: Spontaneous
  Country: US (occurrence: US)
  Receive Date: 20190506
  Receipt Date: 20190506
  Transmission Date: 20190711
  Serious: Yes (Hospitalization)
  Sender: FDA-Public Use
  Company Number: US-NATCO PHARMA-2019NAT00025

PATIENT
  Age: 56 Year
  Sex: Female

DRUGS (2)
  1. TICLOPIDINE [Concomitant]
     Active Substance: TICLOPIDINE
     Dosage: 500 MG, 1X/DAY
     Route: 065
     Dates: start: 201207
  2. ANASTROZOLE. [Suspect]
     Active Substance: ANASTROZOLE
     Indication: BREAST CANCER
     Dosage: 1 MG, 1X/DAY
     Route: 065
     Dates: start: 201202

REACTIONS (2)
  - Cerebral ischaemia [Recovered/Resolved]
  - Antiphospholipid syndrome [Recovered/Resolved]

NARRATIVE: CASE EVENT DATE: 201208
